FAERS Safety Report 8793874 (Version 2)
Quarter: 2013Q4

REPORT INFORMATION
  Report Type: Report from Study
  Country: US (occurrence: US)
  Receive Date: 20120918
  Receipt Date: 20131106
  Transmission Date: 20140711
  Serious: Yes (Hospitalization)
  Sender: FDA-Public Use
  Company Number: US-009507513-1112USA00192

PATIENT
  Age: 57 Year
  Sex: Female
  Weight: 70.4 kg

DRUGS (26)
  1. BLINDED BOCEPREVIR [Suspect]
     Dosage: 400 MG, QD
     Route: 048
     Dates: start: 20110920, end: 20111123
  2. BLINDED MK-5172 [Suspect]
     Dosage: 400 MG, QD
     Route: 048
     Dates: start: 20110920, end: 20111123
  3. BLINDED PEGINTERFERON ALFA-2B [Suspect]
     Dosage: 400 MG, QD
     Route: 048
     Dates: start: 20110920, end: 20111123
  4. BLINDED PLACEBO [Suspect]
     Dosage: 400 MG, QD
     Route: 048
     Dates: start: 20110920, end: 20111123
  5. BLINDED POST TRIAL THERAPY [Suspect]
     Dosage: 400 MG, QD
     Route: 048
     Dates: start: 20110920, end: 20111123
  6. BLINDED PRE TRIAL THERAPY [Suspect]
     Dosage: 400 MG, QD
     Route: 048
     Dates: start: 20110920, end: 20111123
  7. BLINDED RIBAVIRIN [Suspect]
     Dosage: 400 MG, QD
     Route: 048
     Dates: start: 20110920, end: 20111123
  8. PEGINTRON [Suspect]
     Indication: CHRONIC HEPATITIS C
     Dosage: 0.4 ML, QW
     Route: 058
     Dates: start: 20110920
  9. REBETOL [Suspect]
     Indication: CHRONIC HEPATITIS C
     Dosage: 3 DF, PM
     Route: 048
     Dates: start: 20110920, end: 20111122
  10. REBETOL [Suspect]
     Dosage: 2 DF, AM
     Route: 048
     Dates: start: 20110920, end: 20111005
  11. REBETOL [Suspect]
     Dosage: 2 DF, AM
     Route: 048
     Dates: start: 20111007, end: 20111123
  12. REBETOL [Suspect]
     Dosage: 2 DF, AM
     Route: 048
     Dates: start: 20111117, end: 20111123
  13. REBETOL [Suspect]
     Dosage: 3 DF, PM
     Route: 048
     Dates: start: 20111129, end: 20111219
  14. REBETOL [Suspect]
     Dosage: 2 DF, AM
     Route: 048
     Dates: start: 20111129, end: 20120115
  15. REBETOL [Suspect]
     Dosage: 2 DF, PM
     Route: 048
     Dates: start: 20111220, end: 20120103
  16. REBETOL [Suspect]
     Dosage: 3 DF, PM
     Route: 048
     Dates: start: 20120104, end: 20120114
  17. REBETOL [Suspect]
     Dosage: 2 DF, AM
     Route: 048
     Dates: start: 20120117, end: 20120304
  18. REBETOL [Suspect]
     Dosage: 3 DF, PM
     Route: 048
     Dates: start: 20120116, end: 20120307
  19. REBETOL [Suspect]
     Dosage: 2 DF, AM
     Route: 048
     Dates: start: 20120306, end: 20120308
  20. WELLBUTRIN XL [Concomitant]
     Indication: DEPRESSION
     Dosage: 1 DF, QD
     Route: 048
     Dates: start: 200701
  21. EFFEXOR [Concomitant]
     Indication: DEPRESSION
     Dosage: 2 DF, QD
     Route: 048
     Dates: start: 200301
  22. VALTREX [Concomitant]
     Indication: HERPES VIRUS INFECTION
     Dosage: 1 DF, QD
     Route: 048
     Dates: start: 200101
  23. VITAMIN B COMPLEX [Concomitant]
     Indication: ROUTINE HEALTH MAINTENANCE
     Dosage: 1 DF, QD
     Route: 048
     Dates: start: 198201
  24. LYSINE [Concomitant]
     Indication: HERPES VIRUS INFECTION
     Dosage: 1 DF, QD
     Route: 048
     Dates: start: 199001
  25. DEPLIN [Concomitant]
     Indication: ROUTINE HEALTH MAINTENANCE
     Dosage: 1 DF, QD
     Dates: start: 20110601
  26. IBUPROFEN [Concomitant]
     Indication: PROPHYLAXIS
     Dosage: 1 TABLET, PRN
     Route: 048
     Dates: start: 20110920, end: 20120529

REACTIONS (1)
  - Dehydration [Recovered/Resolved with Sequelae]
